FAERS Safety Report 5763996-1 (Version None)
Quarter: 2008Q2

REPORT INFORMATION
  Report Type: 
  Country: None (occurrence: None)
  Receive Date: 20080609
  Receipt Date: 20080303
  Transmission Date: 20081010
  Serious: No
  Sender: FDA-Public Use
  Company Number: 002#2#2008-00096

PATIENT
  Age: 74 Year
  Sex: Male

DRUGS (1)
  1. NEUPRO [Suspect]
     Indication: PARKINSON'S DISEASE
     Dosage: 2MG/24H,1 IN 1 D, TRANSDERMAL
     Route: 062
     Dates: start: 20080225

REACTIONS (2)
  - ANOREXIA [None]
  - NAUSEA [None]
